FAERS Safety Report 5642496-3 (Version None)
Quarter: 2008Q1

REPORT INFORMATION
  Report Type: 
  Country: None (occurrence: None)
  Receive Date: 20080227
  Receipt Date: 20080227
  Transmission Date: 20080703
  Serious: Yes (Disabling, Other)
  Sender: FDA-Public Use
  Company Number: None

PATIENT
  Age: 58 Year
  Sex: Female

DRUGS (4)
  1. FOSAMAX [Suspect]
     Indication: OSTEOPOROSIS
     Dosage: 10MG/DAILY   : 70 MG/WK
     Dates: start: 20010101, end: 20020101
  2. FOSAMAX [Suspect]
     Indication: OSTEOPOROSIS
     Dosage: 10MG/DAILY   : 70 MG/WK
     Dates: start: 20020101, end: 20060101
  3. MAXZIDE [Concomitant]
  4. VICODIN [Concomitant]

REACTIONS (3)
  - BONE GRAFT [None]
  - INFECTION [None]
  - OSTEONECROSIS [None]
